FAERS Safety Report 4289190-1 (Version None)
Quarter: 2004Q1

REPORT INFORMATION
  Report Type: 
  Country: None (occurrence: None)
  Receive Date: 20040206
  Receipt Date: 20040124
  Transmission Date: 20041129
  Serious: Yes (Other)
  Sender: FDA-Public Use
  Company Number: 2003122614

PATIENT
  Age: 87 Year
  Sex: Male

DRUGS (6)
  1. LIPITOR [Suspect]
     Indication: BLOOD CHOLESTEROL INCREASED
     Dates: start: 20021028, end: 20031201
  2. ZOLOFT [Suspect]
     Indication: ILL-DEFINED DISORDER
     Dosage: 50 MG
     Dates: start: 20030101
  3. DONEPEZIL HCL [Suspect]
     Indication: ILL-DEFINED DISORDER
  4. ESOMEPRAZOLE [Concomitant]
  5. FOLIC ACID [Concomitant]
  6. VITAMINS NOS [Concomitant]

REACTIONS (16)
  - ANAEMIA MACROCYTIC [None]
  - ASTHENIA [None]
  - BALANCE DISORDER [None]
  - BLOOD HOMOCYSTEINE INCREASED [None]
  - BLOOD PRESSURE DECREASED [None]
  - DEPRESSION [None]
  - DIZZINESS [None]
  - ENCEPHALOPATHY [None]
  - EXTRAPYRAMIDAL DISORDER [None]
  - INFREQUENT BOWEL MOVEMENTS [None]
  - LIP DRY [None]
  - MACROCYTOSIS [None]
  - MEMORY IMPAIRMENT [None]
  - MUSCULOSKELETAL STIFFNESS [None]
  - NEOPLASM SKIN [None]
  - WEIGHT DECREASED [None]
